FAERS Safety Report 7940604-2 (Version None)
Quarter: 2011Q4

REPORT INFORMATION
  Report Type: 
  Country: None (occurrence: None)
  Receive Date: 20111128
  Receipt Date: 20111115
  Transmission Date: 20120403
  Serious: No
  Sender: FDA-Public Use
  Company Number: CA-JNJFOC-20111107499

PATIENT
  Sex: Female
  Weight: 49.4 kg

DRUGS (4)
  1. METHOTREXATE [Concomitant]
     Route: 048
  2. REMICADE [Suspect]
     Indication: RHEUMATOID ARTHRITIS
     Route: 042
     Dates: start: 20070227
  3. FOLIC ACID [Concomitant]
     Route: 048
  4. ZOLEDRONOC ACID [Concomitant]
     Route: 042

REACTIONS (1)
  - VULVOVAGINAL MYCOTIC INFECTION [None]
